FAERS Safety Report 4317988-X (Version None)
Quarter: 2004Q1

REPORT INFORMATION
  Report Type: 
  Country: None (occurrence: None)
  Receive Date: 20040316
  Receipt Date: 20010205
  Transmission Date: 20041129
  Serious: Yes (Death, Life-Threatening, Other)
  Sender: FDA-Public Use
  Company Number: 2001SUS0095

PATIENT
  Age: 40 Year
  Sex: Male
  Weight: 67 kg

DRUGS (9)
  1. SUSTIVA [Suspect]
     Indication: HIV INFECTION
     Route: 048
     Dates: start: 20010105
  2. VIDEX [Suspect]
     Indication: HIV INFECTION
     Route: 048
     Dates: start: 20010105
  3. FTC [Suspect]
     Indication: HIV INFECTION
     Route: 048
     Dates: start: 20010105
  4. DOLIPRANE [Suspect]
     Indication: HEADACHE
     Route: 048
     Dates: start: 20010105, end: 20010121
  5. ZYRTEC [Concomitant]
     Dosage: STOPPED ON 10/29/01, ALSO TAKEN ON 12/7/01
     Dates: start: 20011012, end: 20011207
  6. PROZAC [Concomitant]
     Indication: DEPRESSION
     Dates: start: 20011211
  7. LORAZEPAM [Concomitant]
     Indication: ANXIETY
     Dates: start: 20011207
  8. ASPIRIN [Concomitant]
     Dates: start: 20011207
  9. AUGMENTIN [Concomitant]
     Indication: PYREXIA
     Dates: start: 20011208, end: 20011213

REACTIONS (11)
  - ANXIETY [None]
  - BLOOD AMYLASE INCREASED [None]
  - BLOOD CHOLESTEROL INCREASED [None]
  - BLOOD TRIGLYCERIDES INCREASED [None]
  - COMPLETED SUICIDE [None]
  - CYTOLYTIC HEPATITIS [None]
  - INTENTIONAL OVERDOSE [None]
  - PYREXIA [None]
  - SLEEP DISORDER [None]
  - SUICIDE ATTEMPT [None]
  - URTICARIA [None]
